FAERS Safety Report 7129536-X (Version None)
Quarter: 2010Q4

REPORT INFORMATION
  Report Type: 
  Country: None (occurrence: None)
  Receive Date: 20101130
  Receipt Date: 20101117
  Transmission Date: 20110411
  Serious: Yes (Other)
  Sender: FDA-Public Use
  Company Number: DE-TYCO HEALTHCARE/MALLINCKRODT-T201002354

PATIENT
  Sex: Male
  Weight: 118 kg

DRUGS (6)
  1. EXALGO [Suspect]
     Indication: BONE PAIN
     Dosage: 64 MG, QD
     Route: 048
     Dates: start: 20100919
  2. ALL OTHER THERAPEUTIC PRODUCTS [Suspect]
     Dosage: UNK
  3. CYNT                               /00985301/ [Concomitant]
     Dosage: 0.4 MG, UNK
  4. ATACAND [Concomitant]
     Dosage: UNK
  5. AMITRIPTYLINE [Concomitant]
     Dosage: 25 MG, BID
  6. PANTOPRAZOLE [Concomitant]
     Dosage: 20 MG, UNK

REACTIONS (7)
  - BLOOD CREATINE PHOSPHOKINASE INCREASED [None]
  - DRUG INEFFECTIVE [None]
  - DRUG INTERACTION [None]
  - MUSCLE SPASMS [None]
  - RESTLESSNESS [None]
  - TREMOR [None]
  - WITHDRAWAL SYNDROME [None]
